FAERS Safety Report 14176106 (Version 7)
Quarter: 2018Q2

REPORT INFORMATION
  Report Type: Report from Study
  Country: US (occurrence: US)
  Receive Date: 20171109
  Receipt Date: 20180517
  Transmission Date: 20180711
  Serious: Yes (Hospitalization, Other)
  Sender: FDA-Public Use
  Company Number: PHHO2017US015225

PATIENT
  Age: 43 Year
  Sex: Male
  Weight: 89.52 kg

DRUGS (19)
  1. GSK2118436 [Suspect]
     Active Substance: DABRAFENIB
     Dosage: 75 MG, UNK
     Route: 048
     Dates: end: 20180507
  2. GSK1120212 [Suspect]
     Active Substance: TRAMETINIB
     Dosage: 1.5 MG, BID
     Route: 048
     Dates: start: 20171219, end: 20180102
  3. HYDROXYCHLOROQUINE [Suspect]
     Active Substance: HYDROXYCHLOROQUINE
     Dosage: 600 MG, UNK
     Route: 048
     Dates: end: 20180507
  4. PEMBROLIZUMAB. [Suspect]
     Active Substance: PEMBROLIZUMAB
     Indication: PRODUCT USED FOR UNKNOWN INDICATION
     Dosage: UNK
     Route: 065
     Dates: start: 20170814, end: 20170905
  5. MELATONIN [Concomitant]
     Active Substance: MELATONIN
     Indication: PRODUCT USED FOR UNKNOWN INDICATION
     Dosage: 1 DF (TABLET 1.5MG), AS DIRECTED
     Route: 048
     Dates: start: 20170101
  6. LORAZEPAM. [Concomitant]
     Active Substance: LORAZEPAM
     Indication: PRODUCT USED FOR UNKNOWN INDICATION
     Dosage: 1 DF (0.5MG), AS DIRECTED
     Route: 048
     Dates: start: 20170101
  7. SERTRALINE [Concomitant]
     Active Substance: SERTRALINE HYDROCHLORIDE
     Indication: PRODUCT USED FOR UNKNOWN INDICATION
     Dosage: 1 DF (50MG TABLET), AS DIRECTED
     Route: 048
     Dates: start: 20100101
  8. BENICAR [Concomitant]
     Active Substance: OLMESARTAN MEDOXOMIL
     Indication: PRODUCT USED FOR UNKNOWN INDICATION
     Dosage: 2 DF (TABLET OF 5MG) DAILY
     Route: 048
     Dates: start: 20171002
  9. ONDANSETRON HCL [Concomitant]
     Active Substance: ONDANSETRON HYDROCHLORIDE
     Indication: PRODUCT USED FOR UNKNOWN INDICATION
     Dosage: 1 DF (TABLET OF 8MG), QID PRN
     Route: 048
     Dates: start: 20171023
  10. GSK2118436 [Suspect]
     Active Substance: DABRAFENIB
     Dosage: 2 DF (75MG), QD
     Route: 048
     Dates: start: 20171002, end: 20171026
  11. HYDROXYCHLOROQUINE [Suspect]
     Active Substance: HYDROXYCHLOROQUINE
     Dosage: 600 MG, BID
     Route: 048
     Dates: start: 20171219, end: 20171231
  12. PROBIOTIC [Concomitant]
     Active Substance: PROBIOTICS NOS
     Indication: PRODUCT USED FOR UNKNOWN INDICATION
     Dosage: 1 DF (CAPSULE), QD
     Route: 048
  13. GSK1120212 [Suspect]
     Active Substance: TRAMETINIB
     Dosage: 1 MG, UNK
     Route: 048
     Dates: end: 20180507
  14. HYDROXYCHLOROQUINE [Suspect]
     Active Substance: HYDROXYCHLOROQUINE
     Dosage: 600 MG, BID
     Route: 048
     Dates: start: 20171010, end: 20171026
  15. GSK2118436 [Suspect]
     Active Substance: DABRAFENIB
     Dosage: 2 DF (75MG), QD
     Route: 048
     Dates: start: 20171219, end: 20171229
  16. GSK1120212 [Suspect]
     Active Substance: TRAMETINIB
     Dosage: 1 DF (2MG), BID
     Route: 048
     Dates: start: 20171002, end: 20171026
  17. GSK2118436 [Suspect]
     Active Substance: DABRAFENIB
     Indication: MALIGNANT MELANOMA
     Dosage: UNK
     Route: 048
     Dates: start: 20170210
  18. GSK1120212 [Suspect]
     Active Substance: TRAMETINIB
     Indication: MALIGNANT MELANOMA
     Dosage: UNK
     Route: 048
     Dates: start: 20170210
  19. HYDROXYCHLOROQUINE [Suspect]
     Active Substance: HYDROXYCHLOROQUINE
     Indication: MALIGNANT MELANOMA
     Dosage: UNK
     Route: 048
     Dates: start: 20170210

REACTIONS (5)
  - Autoimmune hepatitis [Unknown]
  - Bacteraemia [Recovered/Resolved]
  - Dehydration [Not Recovered/Not Resolved]
  - Liver function test increased [Not Recovered/Not Resolved]
  - Pyrexia [Not Recovered/Not Resolved]

NARRATIVE: CASE EVENT DATE: 20171026
